FAERS Safety Report 11611650 (Version 12)
Quarter: 2017Q3

REPORT INFORMATION
  Report Type: Report from Study
  Country: BE (occurrence: BE)
  Receive Date: 20151008
  Receipt Date: 20170705
  Transmission Date: 20171127
  Serious: Yes (Other)
  Sender: FDA-Public Use
  Company Number: PHHY2014BE004017

PATIENT
  Age: 48 Year
  Sex: Female

DRUGS (4)
  1. GILENYA [Suspect]
     Active Substance: FINGOLIMOD HYDROCHLORIDE
     Indication: MULTIPLE SCLEROSIS
     Dosage: 0.5 MG, QD
     Route: 048
     Dates: start: 20131219, end: 20140114
  2. GILENYA [Suspect]
     Active Substance: FINGOLIMOD HYDROCHLORIDE
     Dosage: 0.5 MG, QD
     Route: 048
     Dates: start: 20160729
  3. GILENYA [Suspect]
     Active Substance: FINGOLIMOD HYDROCHLORIDE
     Dosage: 0.5 MG, QD
     Route: 048
     Dates: start: 20151125, end: 20160722
  4. GILENYA [Suspect]
     Active Substance: FINGOLIMOD HYDROCHLORIDE
     Dosage: 0.5 MG, QD
     Route: 048
     Dates: start: 20140211, end: 20151118

REACTIONS (21)
  - Dyspnoea [Recovered/Resolved]
  - Lymphopenia [Recovered/Resolved]
  - Back pain [Recovered/Resolved]
  - White blood cell count decreased [Unknown]
  - Fall [Unknown]
  - Sinus bradycardia [Unknown]
  - Osteoporosis [Unknown]
  - Cough [Recovered/Resolved]
  - Hypotension [Unknown]
  - Chest discomfort [Recovered/Resolved]
  - Dyspnoea [Recovered/Resolved]
  - Tooth loss [Unknown]
  - Blindness [Recovered/Resolved]
  - Gamma-glutamyltransferase increased [Unknown]
  - Chest discomfort [Recovered/Resolved]
  - Panic attack [Recovered/Resolved]
  - Palpitations [Recovered/Resolved]
  - Rib fracture [Recovered/Resolved]
  - Chest pain [Recovered/Resolved]
  - Hyperventilation [Recovered/Resolved]
  - Nasopharyngitis [Recovered/Resolved]

NARRATIVE: CASE EVENT DATE: 20131219
